FAERS Safety Report 14392299 (Version 3)
Quarter: 2018Q1

REPORT INFORMATION
  Report Type: Spontaneous
  Country: US (occurrence: US)
  Receive Date: 20180116
  Receipt Date: 20180213
  Transmission Date: 20180509
  Serious: Yes (Hospitalization)
  Sender: FDA-Public Use
  Company Number: US-PFIZER INC-2018016637

PATIENT
  Age: 77 Year
  Sex: Male

DRUGS (18)
  1. NORTHERA [Suspect]
     Active Substance: DROXIDOPA
     Indication: ORTHOSTATIC HYPOTENSION
     Dosage: 1800 MG, DAILY 48 HOUR TITRATION; TITRATION DOSE (600 MG, 3 IN 1 D)
     Route: 048
  2. NORTHERA [Suspect]
     Active Substance: DROXIDOPA
     Dosage: 1800 MG, DAILY 48 HOUR TITRATION; TITRATION DOSE (500 MG, 3 IN 1 D)
     Route: 048
  3. FLUDROCORTISON [Concomitant]
     Active Substance: FLUDROCORTISONE
  4. VITAMIN E [Concomitant]
     Active Substance: .ALPHA.-TOCOPHEROL
  5. RASAGILINE. [Concomitant]
     Active Substance: RASAGILINE
  6. COQ10 [Concomitant]
     Active Substance: UBIDECARENONE
  7. NORTHERA [Suspect]
     Active Substance: DROXIDOPA
     Dosage: 1500 MG, DAILY 48 HOUR TITRATION; TITRATION DOSE (500 MG, 3 IN 1 D)
     Route: 048
     Dates: start: 20171222
  8. DULOXETINE. [Concomitant]
     Active Substance: DULOXETINE
  9. ATORVASTATIN [Concomitant]
     Active Substance: ATORVASTATIN
  10. DILANTIN [Suspect]
     Active Substance: PHENYTOIN
     Dosage: 6 DF, 3X/DAY
  11. NORTHERA [Suspect]
     Active Substance: DROXIDOPA
     Dosage: 100 MG, 1X/DAY
     Route: 048
     Dates: start: 201712
  12. VITAMIN D3 [Concomitant]
     Active Substance: CHOLECALCIFEROL
  13. PHENYTOIN. [Concomitant]
     Active Substance: PHENYTOIN
     Dosage: UNK
  14. NORTHERA [Suspect]
     Active Substance: DROXIDOPA
     Indication: PARKINSON^S DISEASE
     Dosage: 100 MG, UNK (48 HOUR TITRATION)
     Route: 048
     Dates: start: 20171205
  15. TAMSULOSIN [Concomitant]
     Active Substance: TAMSULOSIN
  16. VITAMIN C [Concomitant]
     Active Substance: ASCORBIC ACID
  17. DILANTIN [Suspect]
     Active Substance: PHENYTOIN
     Dosage: 5 DF, 3X/DAY
     Dates: start: 20171222
  18. ASPIRIN. [Concomitant]
     Active Substance: ASPIRIN

REACTIONS (3)
  - Confusional state [Unknown]
  - Speech disorder [Unknown]
  - Feeling abnormal [Unknown]

NARRATIVE: CASE EVENT DATE: 20171215
